FAERS Safety Report 11441548 (Version 3)
Quarter: 2018Q3

REPORT INFORMATION
  Report Type: Spontaneous
  Country: GB (occurrence: GB)
  Receive Date: 20150901
  Receipt Date: 20180706
  Transmission Date: 20181010
  Serious: Yes (Hospitalization, Other)
  Sender: FDA-Public Use
  Company Number: GB-SA-2015SA127785

PATIENT
  Age: 68 Year
  Sex: Male

DRUGS (13)
  1. CLARITHROMYCIN. [Interacting]
     Active Substance: CLARITHROMYCIN
     Indication: MYCOBACTERIUM MARINUM INFECTION
  2. RIFAMPICIN [Suspect]
     Active Substance: RIFAMPIN
     Indication: TENOSYNOVITIS
  3. CLARITHROMYCIN. [Interacting]
     Active Substance: CLARITHROMYCIN
     Indication: DACTYLITIS
  4. RIFAMPICIN [Suspect]
     Active Substance: RIFAMPIN
     Indication: DACTYLITIS
  5. ETHAMBUTOL [Suspect]
     Active Substance: ETHAMBUTOL HYDROCHLORIDE
     Indication: SKIN ULCER
  6. ETHAMBUTOL [Suspect]
     Active Substance: ETHAMBUTOL HYDROCHLORIDE
     Indication: DACTYLITIS
  7. CLARITHROMYCIN. [Interacting]
     Active Substance: CLARITHROMYCIN
     Indication: TENOSYNOVITIS
  8. RIFAMPICIN [Suspect]
     Active Substance: RIFAMPIN
     Indication: SKIN ULCER
     Dosage: UNK UNK,UNK
     Route: 065
  9. RIFAMPICIN [Suspect]
     Active Substance: RIFAMPIN
     Indication: MYCOBACTERIUM MARINUM INFECTION
  10. ETHAMBUTOL [Suspect]
     Active Substance: ETHAMBUTOL HYDROCHLORIDE
     Indication: MYCOBACTERIUM MARINUM INFECTION
     Dosage: UNK UNK,UNK
     Route: 065
  11. CLARITHROMYCIN. [Interacting]
     Active Substance: CLARITHROMYCIN
     Indication: SKIN ULCER
     Dosage: UNK UNK,UNK
     Route: 065
  12. SIMVASTATIN. [Interacting]
     Active Substance: SIMVASTATIN
     Indication: HYPERCHOLESTEROLAEMIA
     Dosage: 40 MG,QD
     Route: 048
     Dates: end: 20140818
  13. ETHAMBUTOL [Suspect]
     Active Substance: ETHAMBUTOL HYDROCHLORIDE
     Indication: TENOSYNOVITIS

REACTIONS (14)
  - Blood urea increased [Unknown]
  - Eye pain [Unknown]
  - Blood potassium increased [Unknown]
  - Drug interaction [Unknown]
  - Anuria [Recovered/Resolved]
  - Pain in extremity [Recovering/Resolving]
  - Nausea [Unknown]
  - Rhabdomyolysis [Recovering/Resolving]
  - Acute kidney injury [Recovering/Resolving]
  - Dysgeusia [Unknown]
  - Myopathy [Recovering/Resolving]
  - Product use issue [Unknown]
  - Blood creatine phosphokinase increased [Recovered/Resolved]
  - Blood creatinine increased [Unknown]
